FAERS Safety Report 20219627 (Version 1)
Quarter: 2021Q4

REPORT INFORMATION
  Report Type: Report from Study
  Country: US (occurrence: US)
  Receive Date: 20211222
  Receipt Date: 20211222
  Transmission Date: 20220303
  Serious: Yes (Other)
  Sender: FDA-Public Use
  Company Number: US-CELGENE-USA-20211205544

PATIENT
  Age: 39 Year
  Sex: Male

DRUGS (1)
  1. ZEPOSIA [Suspect]
     Active Substance: OZANIMOD HYDROCHLORIDE
     Indication: Multiple sclerosis
     Dosage: 0.23, 0.46 MG
     Route: 048
     Dates: start: 20211209

REACTIONS (2)
  - Diabetes mellitus [Unknown]
  - Pollakiuria [Unknown]

NARRATIVE: CASE EVENT DATE: 20211209
